FAERS Safety Report 21700858 (Version 1)
Quarter: 2022Q4

REPORT INFORMATION
  Report Type: Spontaneous
  Country: US (occurrence: US)
  Receive Date: 20221208
  Receipt Date: 20221208
  Transmission Date: 20230113
  Serious: No
  Sender: FDA-Public Use
  Company Number: US-GUERBET-US-20220082

PATIENT
  Age: 81 Year
  Sex: Male

DRUGS (3)
  1. OPTIRAY 350 [Suspect]
     Active Substance: IOVERSOL
     Indication: Computerised tomogram abdomen
     Route: 040
     Dates: start: 20220906, end: 20220906
  2. BARIUM SULFATE [Concomitant]
     Active Substance: BARIUM SULFATE
     Indication: Product used for unknown indication
     Dosage: 1 HOUR BEFORE PROCEDURE AND 250 ML RIGHT BEFORE THE PROCEDURE
     Route: 065
  3. BARIUM SULFATE [Concomitant]
     Active Substance: BARIUM SULFATE
     Dosage: 3 HOUR BEFORE THE PROCEDURE
     Route: 065

REACTIONS (6)
  - Peripheral swelling [Recovered/Resolved with Sequelae]
  - Burning sensation [Not Recovered/Not Resolved]
  - Injection site swelling [Recovering/Resolving]
  - Injection site pain [Recovering/Resolving]
  - Extravasation [Unknown]
  - Restlessness [Unknown]

NARRATIVE: CASE EVENT DATE: 20220906
